FAERS Safety Report 15159123 (Version 1)
Quarter: 2018Q3

REPORT INFORMATION
  Report Type: Spontaneous
  Country: US (occurrence: US)
  Receive Date: 20180718
  Receipt Date: 20180718
  Transmission Date: 20181010
  Serious: Yes (Other)
  Sender: FDA-Public Use
  Company Number: US-PFIZER INC-2018284508

PATIENT

DRUGS (8)
  1. ZETIA [Suspect]
     Active Substance: EZETIMIBE
     Dosage: UNK
  2. FLAXSEED [Suspect]
     Active Substance: FLAX SEED
     Dosage: UNK
  3. COENZYME Q10 [Suspect]
     Active Substance: UBIDECARENONE
     Dosage: UNK
  4. PLAVIX [Suspect]
     Active Substance: CLOPIDOGREL BISULFATE
     Dosage: UNK
  5. FISH OIL [Suspect]
     Active Substance: FISH OIL
     Dosage: UNK
  6. ALTACE [Suspect]
     Active Substance: RAMIPRIL
     Dosage: UNK
  7. PRALUENT [Suspect]
     Active Substance: ALIROCUMAB
     Dosage: UNK
  8. PLENDIL [Suspect]
     Active Substance: FELODIPINE
     Dosage: UNK

REACTIONS (1)
  - Thrombosis [Unknown]
